FAERS Safety Report 9798654 (Version 2)
Quarter: 2015Q3

REPORT INFORMATION
  Report Type: Spontaneous
  Country: US (occurrence: US)
  Receive Date: 20140106
  Receipt Date: 20150806
  Transmission Date: 20151125
  Serious: No
  Sender: FDA-Public Use
  Company Number: US-GILEAD-2010-0029677

PATIENT
  Age: 56 Year
  Sex: Female
  Weight: 77.3 kg

DRUGS (5)
  1. LETAIRIS [Suspect]
     Active Substance: AMBRISENTAN
     Indication: PULMONARY ARTERIAL HYPERTENSION
     Route: 048
     Dates: start: 20081219
  2. LIPITOR [Concomitant]
     Active Substance: ATORVASTATIN CALCIUM
  3. GLUCOPHAGE [Concomitant]
     Active Substance: METFORMIN HYDROCHLORIDE
  4. TORSEMIDE. [Concomitant]
     Active Substance: TORSEMIDE
  5. ASA [Concomitant]
     Active Substance: ASPIRIN

REACTIONS (2)
  - Oedema peripheral [Unknown]
  - Fatigue [Unknown]

NARRATIVE: CASE EVENT DATE: 20100605
